FAERS Safety Report 6694254-9 (Version None)
Quarter: 2010Q2

REPORT INFORMATION
  Report Type: 
  Country: None (occurrence: None)
  Receive Date: 20100423
  Receipt Date: 20100409
  Transmission Date: 20101027
  Serious: Yes (Hospitalization, Other)
  Sender: FDA-Public Use
  Company Number: US-CELGENEUS-163-20785-10020664

PATIENT
  Sex: Female

DRUGS (4)
  1. THALOMID [Suspect]
     Indication: MULTIPLE MYELOMA
     Route: 048
     Dates: start: 20081020, end: 20100111
  2. THALOMID [Suspect]
     Route: 048
     Dates: start: 20070601, end: 20080201
  3. THALOMID [Suspect]
     Route: 048
     Dates: start: 20080801, end: 20080901
  4. IV FLUIDS [Concomitant]
     Route: 051

REACTIONS (3)
  - LUNG INFILTRATION [None]
  - NEUROPATHY PERIPHERAL [None]
  - PULMONARY EMBOLISM [None]
